FAERS Safety Report 4494002-7 (Version None)
Quarter: 2004Q4

REPORT INFORMATION
  Report Type: 
  Country: None (occurrence: None)
  Receive Date: 20041105
  Receipt Date: 20041101
  Transmission Date: 20050328
  Serious: Yes (Hospitalization)
  Sender: FDA-Public Use
  Company Number: US-JNJFOC-20040602987

PATIENT
  Age: 74 Year
  Sex: Female

DRUGS (2)
  1. DURAGESIC [Suspect]
     Route: 062
     Dates: start: 20040413, end: 20040501
  2. DURAGESIC [Suspect]
     Route: 062
     Dates: start: 20040413, end: 20040501

REACTIONS (13)
  - BRADYCARDIA [None]
  - COMA [None]
  - CONFUSIONAL STATE [None]
  - DIARRHOEA [None]
  - HEART RATE IRREGULAR [None]
  - HYPERKALAEMIA [None]
  - HYPOTENSION [None]
  - LIVER FUNCTION TEST ABNORMAL [None]
  - MEDICATION ERROR [None]
  - MIOSIS [None]
  - POLYDIPSIA [None]
  - POLYURIA [None]
  - TROPONIN INCREASED [None]
